FAERS Safety Report 5593689-5 (Version None)
Quarter: 2008Q1

REPORT INFORMATION
  Report Type: 
  Country: None (occurrence: None)
  Receive Date: 20080116
  Receipt Date: 20080115
  Transmission Date: 20080703
  Serious: Yes (Hospitalization, Other)
  Sender: FDA-Public Use
  Company Number: CZ-PURDUE-USA_2008_0030956

PATIENT
  Age: 17 Year
  Sex: Female

DRUGS (1)
  1. THEOPHYLLINE (SIMILAR TO 40-086) [Suspect]
     Indication: DRUG USE FOR UNKNOWN INDICATION

REACTIONS (6)
  - BLOOD CREATININE ABNORMAL [None]
  - BLOOD GLUCOSE ABNORMAL [None]
  - HYPOKALAEMIA [None]
  - INTENTIONAL OVERDOSE [None]
  - MYOGLOBIN BLOOD INCREASED [None]
  - VENTRICULAR EXTRASYSTOLES [None]
